FAERS Safety Report 7625938-3 (Version None)
Quarter: 2011Q3

REPORT INFORMATION
  Report Type: 
  Country: None (occurrence: None)
  Receive Date: 20110721
  Receipt Date: 20110721
  Transmission Date: 20111222
  Serious: Yes (Other)
  Sender: FDA-Public Use
  Company Number: None

PATIENT
  Age: 19 Year
  Sex: Male
  Weight: 78.471 kg

DRUGS (2)
  1. VIMPAT [Suspect]
     Indication: CONVULSION
     Dosage: 600 MG IN AM,
     Route: 048
     Dates: start: 20110401, end: 20110720
  2. VIMPAT [Concomitant]
     Dosage: 300 MG IN PM
     Route: 048

REACTIONS (3)
  - OPTIC NEURITIS [None]
  - MULTIPLE SCLEROSIS [None]
  - MYELITIS TRANSVERSE [None]
